FAERS Safety Report 9229105 (Version 1)
Quarter: 2013Q2

REPORT INFORMATION
  Report Type: Spontaneous
  Country: US (occurrence: US)
  Receive Date: 20130412
  Receipt Date: 20130412
  Transmission Date: 20140414
  Serious: Yes (Other)
  Sender: FDA-Public Use
  Company Number: US-PFIZER INC-2013111860

PATIENT
  Age: 30 Year
  Sex: Male
  Weight: 70 kg

DRUGS (1)
  1. XYNTHA [Suspect]
     Indication: FACTOR VIII DEFICIENCY
     Dosage: 30 IU/KG, WEEKLY (3X/WEEK)

REACTIONS (4)
  - Haemorrhage [Unknown]
  - Joint injury [Unknown]
  - Disease complication [Unknown]
  - Off label use [Unknown]
